FAERS Safety Report 4374354-9 (Version None)
Quarter: 2004Q2

REPORT INFORMATION
  Report Type: 
  Country: None (occurrence: None)
  Receive Date: 20040609
  Receipt Date: 20030522
  Transmission Date: 20050107
  Serious: Yes (Hospitalization)
  Sender: FDA-Public Use
  Company Number: PHFR2003GB02133

PATIENT
  Age: 45 Year
  Sex: Female

DRUGS (3)
  1. CLOZARIL [Suspect]
     Indication: SCHIZOPHRENIA
     Dosage: 200MG/MANE+300MG/NOCTE
     Route: 048
     Dates: start: 19970527
  2. CLOZARIL [Suspect]
     Dosage: 200MG/MANE+250MG/NOCTE
     Route: 048
     Dates: start: 20030805
  3. IRON [Concomitant]
     Route: 065

REACTIONS (3)
  - CONSTIPATION [None]
  - HAEMOGLOBIN DECREASED [None]
  - MEGACOLON ACQUIRED [None]
